FAERS Safety Report 8979425 (Version 1)
Quarter: 2012Q4

REPORT INFORMATION
  Report Type: 
  Country: BR (occurrence: BR)
  Receive Date: 20121221
  Receipt Date: 20121221
  Transmission Date: 20130627
  Serious: Yes (Death, Other)
  Sender: FDA-Public Use
  Company Number: BR-ASTRAZENECA-2012SE94839

PATIENT
  Age: 70 Year
  Sex: Female

DRUGS (1)
  1. BRILINTA [Suspect]
     Route: 048

REACTIONS (2)
  - Death [Fatal]
  - Cerebrovascular accident [Unknown]
